FAERS Safety Report 8445641-X (Version None)
Quarter: 2012Q2

REPORT INFORMATION
  Report Type: 
  Country: None (occurrence: None)
  Receive Date: 20120618
  Receipt Date: 20120611
  Transmission Date: 20120825
  Serious: Yes (Other)
  Sender: FDA-Public Use
  Company Number: BR-BAYER-2012-058050

PATIENT
  Age: 51 Year
  Sex: Male
  Weight: 88 kg

DRUGS (1)
  1. SORAFENIB (RAF KINASE INHIBITOR) [Suspect]
     Indication: HEPATIC NEOPLASM MALIGNANT
     Dosage: DAILY DOSE 800 MG
     Route: 048
     Dates: start: 20110901, end: 20120521

REACTIONS (11)
  - HEPATIC CONGESTION [None]
  - HEPATIC PAIN [None]
  - DYSPNOEA [None]
  - INSOMNIA [None]
  - SWELLING [None]
  - GAIT DISTURBANCE [None]
  - PRURITUS GENERALISED [None]
  - NON-CARDIAC CHEST PAIN [None]
  - MOBILITY DECREASED [None]
  - ABDOMINAL DISTENSION [None]
  - ASCITES [None]
